FAERS Safety Report 24083254 (Version 1)
Quarter: 2024Q3

REPORT INFORMATION
  Report Type: Spontaneous
  Country: GB (occurrence: GB)
  Receive Date: 20240712
  Receipt Date: 20240712
  Transmission Date: 20241016
  Serious: No
  Sender: ALKEM
  Company Number: None

PATIENT
  Age: 37 Year
  Sex: Female
  Weight: 64 kg

DRUGS (12)
  1. TOLVAPTAN [Suspect]
     Active Substance: TOLVAPTAN
     Indication: Product used for unknown indication
     Dosage: 7.5 MILLIGRAM
     Route: 065
     Dates: start: 20230303
  2. CETIRIZINE [Concomitant]
     Active Substance: CETIRIZINE HYDROCHLORIDE
     Indication: Product used for unknown indication
     Dosage: UNK (TAKE ONE DAILY)
     Route: 065
     Dates: start: 20230124
  3. CLOTRIMAZOLE [Concomitant]
     Active Substance: CLOTRIMAZOLE
     Indication: Product used for unknown indication
     Dosage: UNK, (USE AS DIRECTED)
     Route: 065
     Dates: start: 20230519, end: 20230520
  4. DIAZEPAM [Concomitant]
     Active Substance: DIAZEPAM
     Indication: Product used for unknown indication
     Dosage: 2 MILLIGRAM, BID
     Route: 065
     Dates: start: 20230309, end: 20230310
  5. FOLIC ACID [Concomitant]
     Active Substance: FOLIC ACID
     Indication: Product used for unknown indication
     Dosage: 1 DOSAGE FORM, QD
     Route: 065
     Dates: start: 20230308
  6. MIRTAZAPINE [Concomitant]
     Active Substance: MIRTAZAPINE
     Indication: Product used for unknown indication
     Dosage: UNK, HS (TAKE ONE AT NIGHT)
     Route: 065
     Dates: start: 20230124
  7. OLANZAPINE [Concomitant]
     Active Substance: OLANZAPINE
     Indication: Product used for unknown indication
     Dosage: 1 DOSAGE FORM, HS (TAKE ONE AT NIGHT)
     Route: 065
     Dates: start: 20230124
  8. ACETAMINOPHEN [Concomitant]
     Active Substance: ACETAMINOPHEN
     Indication: Product used for unknown indication
     Dosage: UNK, (TAKE ONE OR TWO TDS PRN)
     Route: 065
     Dates: start: 20230509, end: 20230513
  9. PROCHLORPERAZINE [Concomitant]
     Active Substance: PROCHLORPERAZINE
     Indication: Product used for unknown indication
     Dosage: 1 DOSAGE FORM, TID (1 THREE TIMES A DAY FOR 3 DAYS)
     Route: 065
     Dates: start: 20230505
  10. RAMIPRIL [Concomitant]
     Active Substance: RAMIPRIL
     Indication: Product used for unknown indication
     Dosage: 2 DOSAGE FORM, QD
     Route: 065
     Dates: start: 20230124
  11. Stexerol-d3 (colecalciferol concentrate (powder form)) [Concomitant]
     Indication: Product used for unknown indication
     Dosage: UNK, (TAKE TWO ONCE EVERY WEEK FOR 6 WEEKS) (R...
     Route: 065
     Dates: start: 20230308, end: 20230419
  12. SUMATRIPTAN [Concomitant]
     Active Substance: SUMATRIPTAN
     Indication: Product used for unknown indication
     Dosage: UNK (TAKE ONE AS DIRECTED. DOSE MAY BE REPEATED AFTE...)
     Route: 065
     Dates: start: 20210528

REACTIONS (1)
  - Drug hypersensitivity [Recovering/Resolving]
